FAERS Safety Report 12520103 (Version 1)
Quarter: 2016Q2

REPORT INFORMATION
  Report Type: Spontaneous
  Country: GB (occurrence: GB)
  Receive Date: 20160630
  Receipt Date: 20160630
  Transmission Date: 20160815
  Serious: Yes (Other)
  Sender: FDA-Public Use
  Company Number: GB-INCYTE CORPORATION-2016IN003917

PATIENT
  Age: 75 Year
  Sex: Female

DRUGS (1)
  1. JAKAFI [Suspect]
     Active Substance: RUXOLITINIB
     Indication: MYELOFIBROSIS
     Dosage: UNK
     Route: 065

REACTIONS (6)
  - Cytopenia [Recovering/Resolving]
  - Sepsis [Unknown]
  - Pain in extremity [Unknown]
  - Spinal cord compression [Unknown]
  - Splenomegaly [Recovering/Resolving]
  - Tuberculosis [Unknown]
